FAERS Safety Report 4517013-1 (Version None)
Quarter: 2004Q4

REPORT INFORMATION
  Report Type: 
  Country: None (occurrence: None)
  Receive Date: 20041029
  Receipt Date: 20040721
  Transmission Date: 20050328
  Serious: No
  Sender: FDA-Public Use
  Company Number: 2004-120735-NL

PATIENT
  Age: 25 Year
  Sex: Female
  Weight: 79.4 kg

DRUGS (3)
  1. NUVARING [Suspect]
     Indication: CONTRACEPTION
     Dosage: DF DAILY VAGINAL
     Route: 067
     Dates: start: 20040523
  2. DIAZIDE [Concomitant]
  3. MULTI-VITAMINS [Concomitant]

REACTIONS (2)
  - DYSURIA [None]
  - VAGINAL MYCOSIS [None]
